FAERS Safety Report 14170394 (Version 1)
Quarter: 2017Q4

REPORT INFORMATION
  Report Type: Spontaneous
  Country: US (occurrence: None)
  Receive Date: 20171108
  Receipt Date: 20171108
  Transmission Date: 20180321
  Serious: No
  Sender: FDA-Public Use
  Company Number: None

PATIENT
  Age: 33 Year
  Sex: Female

DRUGS (1)
  1. CETROTIDE [Suspect]
     Active Substance: CETRORELIX ACETATE
     Indication: INFERTILITY
     Route: 058
     Dates: start: 20170425, end: 20170525

REACTIONS (2)
  - Urticaria [None]
  - Swelling [None]

NARRATIVE: CASE EVENT DATE: 20170425
